FAERS Safety Report 9027046 (Version 2)
Quarter: 2013Q1

REPORT INFORMATION
  Report Type: Spontaneous
  Country: US (occurrence: US)
  Receive Date: 20130123
  Receipt Date: 20130208
  Transmission Date: 20140127
  Serious: Yes (Hospitalization)
  Sender: FDA-Public Use
  Company Number: US-SANOFI-AVENTIS-2013SA004866

PATIENT
  Age: 65 Year
  Sex: Female
  Weight: 155 kg

DRUGS (2)
  1. LANTUS [Suspect]
     Indication: TYPE 2 DIABETES MELLITUS
     Dosage: 30 UNITS AM AND 40 UNITS PM
     Route: 058
     Dates: start: 20120427
  2. NOVOLOG [Concomitant]

REACTIONS (1)
  - Cellulitis [Recovering/Resolving]
